FAERS Safety Report 7096533-2 (Version None)
Quarter: 2010Q4

REPORT INFORMATION
  Report Type: 
  Country: None (occurrence: None)
  Receive Date: 20101111
  Receipt Date: 20101108
  Transmission Date: 20110411
  Serious: Yes (Hospitalization)
  Sender: FDA-Public Use
  Company Number: A0891326A

PATIENT
  Age: 84 Year
  Sex: Female

DRUGS (4)
  1. TYKERB [Suspect]
     Dosage: 1000MG PER DAY
     Route: 048
     Dates: start: 20100101
  2. AUGMENTIN '125' [Suspect]
     Indication: INFECTED SKIN ULCER
     Dosage: 500MG TWICE PER DAY
     Route: 048
     Dates: start: 20100101, end: 20101101
  3. KEFLEX [Suspect]
     Indication: INFECTED SKIN ULCER
     Route: 065
     Dates: start: 20101104, end: 20101101
  4. AROMASIN [Concomitant]

REACTIONS (7)
  - BLISTER [None]
  - DRUG INEFFECTIVE [None]
  - DRUG INTOLERANCE [None]
  - HYPERSOMNIA [None]
  - INFECTED SKIN ULCER [None]
  - STAPHYLOCOCCAL INFECTION [None]
  - VOMITING [None]
